FAERS Safety Report 23400730 (Version 1)
Quarter: 2024Q1

REPORT INFORMATION
  Report Type: Spontaneous
  Country: PT (occurrence: PT)
  Receive Date: 20240115
  Receipt Date: 20240115
  Transmission Date: 20240410
  Serious: Yes (Hospitalization, Other)
  Sender: FDA-Public Use
  Company Number: PT-Zentiva-2023-ZT-026804

PATIENT
  Age: 61 Year
  Sex: Female

DRUGS (1)
  1. ROSUVASTATIN [Suspect]
     Active Substance: ROSUVASTATIN
     Indication: Product used for unknown indication
     Dosage: 20 MILLIGRAM
     Route: 065

REACTIONS (9)
  - Quadriparesis [Unknown]
  - Gait disturbance [Unknown]
  - Dysphagia [Unknown]
  - Muscular weakness [Unknown]
  - Muscle atrophy [Unknown]
  - Asthenia [Unknown]
  - Dysphonia [Unknown]
  - Decreased appetite [Unknown]
  - Immune-mediated myositis [Not Recovered/Not Resolved]

NARRATIVE: CASE EVENT DATE: 20210601
